FAERS Safety Report 25377457 (Version 1)
Quarter: 2025Q2

REPORT INFORMATION
  Report Type: Spontaneous
  Country: US (occurrence: US)
  Receive Date: 20250530
  Receipt Date: 20250530
  Transmission Date: 20250717
  Serious: No
  Sender: CIPLA
  Company Number: US-CIPLA LTD.-2024US08046

PATIENT

DRUGS (6)
  1. ALBUTEROL [Suspect]
     Active Substance: ALBUTEROL
     Indication: Asthma
     Route: 065
  2. ALBUTEROL [Suspect]
     Active Substance: ALBUTEROL
     Indication: Illness
     Dosage: 180 MICROGRAM, QID  (2 PUFFS, EVERY 6 HOURS)
     Route: 065
     Dates: start: 202402
  3. VENTOLIN [Concomitant]
     Active Substance: ALBUTEROL SULFATE
     Indication: Asthma
     Route: 065
  4. PROAIR HFA [Concomitant]
     Active Substance: ALBUTEROL SULFATE
     Indication: Asthma
     Route: 065
  5. PROVENTIL [Concomitant]
     Active Substance: ALBUTEROL
     Indication: Asthma
     Route: 065
  6. BREO ELLIPTA [Concomitant]
     Active Substance: FLUTICASONE FUROATE\VILANTEROL TRIFENATATE
     Indication: Asthma
     Route: 065

REACTIONS (3)
  - Wheezing [Not Recovered/Not Resolved]
  - Device delivery system issue [Unknown]
  - Device mechanical issue [Unknown]

NARRATIVE: CASE EVENT DATE: 20240722
